FAERS Safety Report 13861973 (Version 1)
Quarter: 2017Q3

REPORT INFORMATION
  Report Type: Spontaneous
  Country: GB (occurrence: GB)
  Receive Date: 20170811
  Receipt Date: 20170811
  Transmission Date: 20171127
  Serious: Yes (Other)
  Sender: FDA-Public Use
  Company Number: GB-INTERNATIONAL MEDICATION SYSTEMS, LIMITED-2024536

PATIENT
  Age: 49 Year
  Sex: Female
  Weight: 82.72 kg

DRUGS (2)
  1. LIDOCAINE 200 MG/20 ML [Suspect]
     Active Substance: LIDOCAINE
     Indication: ANAESTHESIA
     Route: 042
     Dates: start: 20170704, end: 20170704
  2. ELLESTE-SOLO [Concomitant]
     Dates: start: 20161115

REACTIONS (1)
  - Anaphylactic reaction [Recovering/Resolving]
